FAERS Safety Report 4323280-X (Version None)
Quarter: 2004Q1

REPORT INFORMATION
  Report Type: 
  Country: None (occurrence: None)
  Receive Date: 20040324
  Receipt Date: 20040324
  Transmission Date: 20041129
  Serious: Yes (Life-Threatening)
  Sender: FDA-Public Use
  Company Number: None

PATIENT
  Age: 56 Year
  Sex: Male
  Weight: 95.2554 kg

DRUGS (1)
  1. PAXIL [Suspect]
     Indication: NEUROPATHY PERIPHERAL
     Dosage: 1 X PER
     Dates: start: 20010101, end: 20010201

REACTIONS (2)
  - DEPRESSION [None]
  - SUICIDAL IDEATION [None]
